FAERS Safety Report 11335472 (Version 1)
Quarter: 2015Q3

REPORT INFORMATION
  Report Type: Spontaneous
  Country: US (occurrence: None)
  Receive Date: 20150731
  Receipt Date: 20150731
  Transmission Date: 20151125
  Serious: No
  Sender: FDA-Public Use
  Company Number: None

PATIENT
  Age: 36 Year
  Sex: Female
  Weight: 85 kg

DRUGS (1)
  1. DILAUDID [Suspect]
     Active Substance: HYDROMORPHONE HYDROCHLORIDE

REACTIONS (3)
  - Unresponsive to stimuli [None]
  - Blood pressure decreased [None]
  - Catheter site haemorrhage [None]

NARRATIVE: CASE EVENT DATE: 20150706
